FAERS Safety Report 6406941-8 (Version None)
Quarter: 2009Q4

REPORT INFORMATION
  Report Type: 
  Country: None (occurrence: None)
  Receive Date: 20091020
  Receipt Date: 20091014
  Transmission Date: 20100525
  Serious: Yes (Hospitalization)
  Sender: FDA-Public Use
  Company Number: US-KINGPHARMUSA00001-K200901276

PATIENT
  Sex: Male

DRUGS (4)
  1. CORGARD [Suspect]
     Indication: PORTAL HYPERTENSION
     Dosage: UNK
     Route: 048
     Dates: start: 20000330
  2. KLONOPIN [Suspect]
     Indication: ANXIETY
     Dosage: 1 UNK, TID
     Route: 048
     Dates: start: 19960911
  3. CLONIDINE [Suspect]
     Indication: AGITATION
     Dosage: 1 DF, BID
     Route: 048
     Dates: start: 20030101
  4. MARAVIROC [Suspect]
     Indication: ANTIRETROVIRAL THERAPY
     Dosage: 600 MG, EVERY 12 HOURS
     Route: 048
     Dates: start: 20090407

REACTIONS (6)
  - BRADYCARDIA [None]
  - ELECTROCARDIOGRAM QT PROLONGED [None]
  - ELECTROCARDIOGRAM ST-T CHANGE [None]
  - HYPOTENSION [None]
  - LETHARGY [None]
  - MULTIPLE DRUG OVERDOSE ACCIDENTAL [None]
